FAERS Safety Report 6890628-1 (Version None)
Quarter: 2010Q3

REPORT INFORMATION
  Report Type: 
  Country: None (occurrence: None)
  Receive Date: 20100731
  Receipt Date: 20090116
  Transmission Date: 20110219
  Serious: No
  Sender: FDA-Public Use
  Company Number: US-PFIZER INC-2008090462

PATIENT
  Sex: Female

DRUGS (1)
  1. LIPITOR [Suspect]

REACTIONS (5)
  - BACK PAIN [None]
  - BURSITIS [None]
  - DIARRHOEA [None]
  - GAIT DISTURBANCE [None]
  - PAIN [None]
